FAERS Safety Report 7271563-6 (Version None)
Quarter: 2011Q1

REPORT INFORMATION
  Report Type: 
  Country: None (occurrence: None)
  Receive Date: 20110203
  Receipt Date: 20110128
  Transmission Date: 20110831
  Serious: Yes (Hospitalization)
  Sender: FDA-Public Use
  Company Number: US-GENZYME-CAMP-1001329

PATIENT
  Sex: Female

DRUGS (2)
  1. CAMPATH [Suspect]
     Dosage: 12 MG, QD
     Route: 042
     Dates: start: 20100316, end: 20100318
  2. CAMPATH [Suspect]
     Indication: MULTIPLE SCLEROSIS
     Dosage: 12 MG, QD
     Route: 042
     Dates: start: 20090316, end: 20090402

REACTIONS (1)
  - IDIOPATHIC THROMBOCYTOPENIC PURPURA [None]
